FAERS Safety Report 12917925 (Version 1)
Quarter: 2016Q4

REPORT INFORMATION
  Report Type: Spontaneous
  Country: US (occurrence: US)
  Receive Date: 20161107
  Receipt Date: 20161107
  Transmission Date: 20170207
  Serious: No
  Sender: FDA-Public Use
  Company Number: US-ANTARES PHARMA, INC.-2016-SPO-ME-0305

PATIENT
  Age: 58 Year
  Sex: Female

DRUGS (2)
  1. METHOTREXATE. [Suspect]
     Active Substance: METHOTREXATE
  2. COSENTYX [Suspect]
     Active Substance: SECUKINUMAB

REACTIONS (3)
  - Dry mouth [Recovered/Resolved]
  - Vulvovaginal dryness [Recovered/Resolved]
  - Dry eye [Recovered/Resolved]
